FAERS Safety Report 20673844 (Version 1)
Quarter: 2022Q2

REPORT INFORMATION
  Report Type: Spontaneous
  Country: US (occurrence: None)
  Receive Date: 20220404
  Receipt Date: 20220404
  Transmission Date: 20220720
  Serious: Yes (Other)
  Sender: FDA-Public Use
  Company Number: None

PATIENT
  Age: 45 Year
  Sex: Male
  Weight: 105.75 kg

DRUGS (2)
  1. OXYCODONE [Suspect]
     Active Substance: OXYCODONE
     Indication: Pain
     Dosage: OTHER QUANTITY : 1 TABLET(S);?FREQUENCY : EVERY 4 HOURS;?
     Route: 048
  2. METHADONE [Suspect]
     Active Substance: METHADONE HYDROCHLORIDE
     Dosage: OTHER QUANTITY : 7 TABLET(S);?FREQUENCY : EVERY DAY BEFORE NOON;?
     Route: 048

REACTIONS (4)
  - Drug withdrawal syndrome [None]
  - Mental disorder [None]
  - Self-injurious ideation [None]
  - Incorrect dose administered [None]

NARRATIVE: CASE EVENT DATE: 20220306
